FAERS Safety Report 11232186 (Version 1)
Quarter: 2015Q3

REPORT INFORMATION
  Report Type: Report from Study
  Country: US (occurrence: US)
  Receive Date: 20150701
  Receipt Date: 20150701
  Transmission Date: 20151125
  Serious: No
  Sender: FDA-Public Use
  Company Number: PHEH2015US008887

PATIENT
  Sex: Female
  Weight: 63.49 kg

DRUGS (2)
  1. GILENYA [Suspect]
     Active Substance: FINGOLIMOD HYDROCHLORIDE
     Indication: MULTIPLE SCLEROSIS
     Dosage: 0.5 MG, QD
     Route: 048
     Dates: start: 20150326
  2. GILENYA [Suspect]
     Active Substance: FINGOLIMOD HYDROCHLORIDE
     Dosage: 0.5 MG, QOD
     Route: 048

REACTIONS (9)
  - Visual acuity reduced [Unknown]
  - Prescribed underdose [Unknown]
  - Off label use [Unknown]
  - Musculoskeletal disorder [Not Recovered/Not Resolved]
  - Asthma [Not Recovered/Not Resolved]
  - Eye disorder [Unknown]
  - White blood cell count decreased [Unknown]
  - Vision blurred [Unknown]
  - Dyspnoea [Recovered/Resolved]
